FAERS Safety Report 17304632 (Version 1)
Quarter: 2020Q1

REPORT INFORMATION
  Report Type: Spontaneous
  Country: US (occurrence: US)
  Receive Date: 20200122
  Receipt Date: 20200122
  Transmission Date: 20200409
  Serious: No
  Sender: FDA-Public Use
  Company Number: US-009507513-2001USA001863

PATIENT
  Age: 19 Year
  Sex: Female
  Weight: 120.18 kg

DRUGS (1)
  1. NEXPLANON [Suspect]
     Active Substance: ETONOGESTREL
     Dosage: 1 IMPLANT FOR 3 YEARS IN HER LEFT ARM
     Route: 059
     Dates: start: 20191112

REACTIONS (4)
  - Device kink [Not Recovered/Not Resolved]
  - No adverse event [Unknown]
  - Poor quality product administered [Unknown]
  - Product quality issue [Unknown]
